FAERS Safety Report 10094321 (Version 1)
Quarter: 2014Q2

REPORT INFORMATION
  Report Type: Spontaneous
  Country: ES (occurrence: ES)
  Receive Date: 20140422
  Receipt Date: 20140422
  Transmission Date: 20141212
  Serious: Yes (Hospitalization)
  Sender: FDA-Public Use
  Company Number: ES-UCBSA-118375

PATIENT
  Age: 58 Year
  Sex: Female

DRUGS (10)
  1. UNIKET RETARD [Suspect]
     Indication: ARTERIOSPASM CORONARY
     Dosage: DAILY DOSE: 50 MG
     Route: 048
     Dates: start: 20140217, end: 20140324
  2. AMLODIPINO ALTER [Suspect]
     Indication: ARTERIOSPASM CORONARY
     Dosage: 10 MG, DAILY DOSE: 20 MG
     Route: 048
     Dates: start: 20140214
  3. TAMSULOSINA CINFA [Suspect]
     Dosage: DAILY DOSE: 0.4 MG
     Route: 048
     Dates: start: 20111116, end: 20140324
  4. ATORVASTATIN [Concomitant]
     Dosage: 10
  5. MATRIFEN [Concomitant]
     Dosage: 25 EVERY 72 HOURS
  6. LYRICA [Concomitant]
     Dosage: 150/12 HOURS
  7. NOLOTIL [Concomitant]
     Dosage: ON DEMAND
  8. FLUOXETINE [Concomitant]
     Dosage: 20
  9. DIAZEPAM [Concomitant]
     Dosage: 5-0-10
  10. OMEPRAZOLE [Concomitant]

REACTIONS (1)
  - Syncope [Recovered/Resolved]
